FAERS Safety Report 13794204 (Version 1)
Quarter: 2017Q3

REPORT INFORMATION
  Report Type: Spontaneous
  Country: DE (occurrence: DE)
  Receive Date: 20170726
  Receipt Date: 20170726
  Transmission Date: 20171127
  Serious: Yes (Life-Threatening, Hospitalization, Other)
  Sender: FDA-Public Use
  Company Number: DE-B.I. PHARMACEUTICALS,INC./RIDGEFIELD-2017-BI-026727

PATIENT
  Age: 76 Year
  Sex: Male
  Weight: 75 kg

DRUGS (6)
  1. PRADAXA [Suspect]
     Active Substance: DABIGATRAN ETEXILATE MESYLATE
     Indication: ATRIAL FIBRILLATION
     Route: 048
     Dates: start: 201501, end: 201612
  2. VALSATAN [Concomitant]
     Indication: HYPERTENSION
     Route: 048
  3. PRADAXA [Suspect]
     Active Substance: DABIGATRAN ETEXILATE MESYLATE
     Indication: BRAIN STEM INFARCTION
  4. PANTOPRAZOL [Concomitant]
     Active Substance: PANTOPRAZOLE SODIUM
     Indication: GASTRITIS
     Route: 048
     Dates: start: 201612
  5. SIMVASTATIN. [Concomitant]
     Active Substance: SIMVASTATIN
     Indication: HYPERLIPIDAEMIA
     Route: 048
  6. PANTOPRAZOL [Concomitant]
     Active Substance: PANTOPRAZOLE SODIUM
     Route: 048

REACTIONS (8)
  - Hemiparesis [Unknown]
  - Nervous system disorder [Unknown]
  - Gait disturbance [Unknown]
  - Cerebral haemorrhage [Recovered/Resolved]
  - Subdural haematoma [Recovered/Resolved]
  - Hyperaesthesia [Unknown]
  - Dysarthria [Unknown]
  - Ataxia [Unknown]

NARRATIVE: CASE EVENT DATE: 20161219
